FAERS Safety Report 19310626 (Version 1)
Quarter: 2021Q2

REPORT INFORMATION
  Report Type: Spontaneous
  Country: DE (occurrence: DE)
  Receive Date: 20210526
  Receipt Date: 20210526
  Transmission Date: 20210717
  Serious: Yes (Other)
  Sender: FDA-Public Use
  Company Number: DE-ASTRAZENECA-2021A449953

PATIENT
  Age: 72 Year
  Sex: Female

DRUGS (9)
  1. TAGRISSO [Suspect]
     Active Substance: OSIMERTINIB
     Indication: NON-SMALL CELL LUNG CANCER
     Route: 048
     Dates: start: 20191213, end: 20210310
  2. DENOSUMAB [Concomitant]
     Active Substance: DENOSUMAB
     Dosage: 6X
     Dates: start: 201808, end: 201901
  3. BEVACIZUMAB. [Concomitant]
     Active Substance: BEVACIZUMAB
     Dosage: 4 TIMES EVERY THREE WEEKS
     Dates: start: 20210315
  4. ATEZOLIZUMAB. [Concomitant]
     Active Substance: ATEZOLIZUMAB
     Dosage: 1200 MG
  5. BEVACIZUMAB. [Concomitant]
     Active Substance: BEVACIZUMAB
     Dosage: 4 TIMES EVERY THREE WEEKS
     Dates: start: 20210428
  6. CARBOPLATIN. [Concomitant]
     Active Substance: CARBOPLATIN
     Dosage: AUC 5
  7. PACLITAXEL. [Concomitant]
     Active Substance: PACLITAXEL
     Dosage: 175 MG/SQUARE METER
  8. BEVACIZUMAB. [Concomitant]
     Active Substance: BEVACIZUMAB
     Dosage: 4 TIMES EVERY THREE WEEKS
     Dates: start: 20210407
  9. AFATINIB [Concomitant]
     Active Substance: AFATINIB
     Indication: SKIN TOXICITY
     Dates: start: 20180730, end: 20190711

REACTIONS (4)
  - Carcinoembryonic antigen increased [Unknown]
  - Metastases to liver [Unknown]
  - Malignant neoplasm progression [Unknown]
  - Off label use [Unknown]
